FAERS Safety Report 15344904 (Version 2)
Quarter: 2018Q3

REPORT INFORMATION
  Report Type: Spontaneous
  Country: BE (occurrence: BE)
  Receive Date: 20180903
  Receipt Date: 20180920
  Transmission Date: 20181010
  Serious: Yes (Hospitalization)
  Sender: FDA-Public Use
  Company Number: BE-PFIZER INC-2018349253

PATIENT
  Age: 87 Year
  Sex: Female
  Weight: 46.8 kg

DRUGS (13)
  1. IRBESARTAN TEVA [Concomitant]
     Active Substance: IRBESARTAN
     Indication: HYPERTENSION
     Dosage: 300 MG, 1X/DAY
     Route: 048
  2. D?CURE [Concomitant]
     Active Substance: CHOLECALCIFEROL
     Indication: VITAMIN D DEFICIENCY
     Dosage: 1 IU, MONTHLY
     Route: 048
  3. MEDROL [METHYLPREDNISOLONE ACETATE] [Concomitant]
     Indication: PSORIATIC ARTHROPATHY
     Dosage: 2 MG, 1X/DAY (FOR 7 YEARS)
     Route: 048
  4. ENBREL [Concomitant]
     Active Substance: ETANERCEPT
     Dosage: 50 MG, WEEKLY
     Route: 058
  5. HALDOL [Concomitant]
     Active Substance: HALOPERIDOL
     Indication: DELIRIUM
     Dosage: 10 GTT, 1X/DAY IF NECESSARY
     Route: 048
  6. OMEPRAZOL [Interacting]
     Active Substance: OMEPRAZOLE
     Indication: PROPHYLAXIS AGAINST GASTROINTESTINAL ULCER
     Dosage: 20 MG, 1X/DAY (FOR 7 YEARS)
     Route: 048
  7. BISOPROLOL EG [Concomitant]
     Active Substance: BISOPROLOL
     Indication: HYPERTENSION
     Dosage: 5 MG, 1X/DAY
     Route: 048
  8. HALDOL [Concomitant]
     Active Substance: HALOPERIDOL
     Indication: CONFUSIONAL STATE
  9. HALDOL [Concomitant]
     Active Substance: HALOPERIDOL
     Indication: DEMENTIA
  10. LEDERTREXATE [Suspect]
     Active Substance: METHOTREXATE
     Dosage: 5 MG, 1X/DAY (1 MG PER DAY FOR ABOUT ONE MONTH)
     Route: 048
  11. DAFALGAN FORTE [Concomitant]
     Dosage: 1 G, 1X/DAY (FOR 7 YEARS)
     Route: 048
  12. STEOVIT FORTE [Concomitant]
     Indication: OSTEOPOROSIS PROPHYLAXIS
     Dosage: 1000 MG, 1X/DAY (1000 MG CALCIUM, 880 IE VITAMIN D)
     Route: 048
  13. FOLIC ACID. [Concomitant]
     Active Substance: FOLIC ACID
     Indication: PROPHYLAXIS
     Dosage: 2 MG, 1X/DAY
     Route: 048

REACTIONS (8)
  - Pyrexia [Recovering/Resolving]
  - Overdose [Recovering/Resolving]
  - Product use issue [Recovering/Resolving]
  - Pancytopenia [Recovering/Resolving]
  - Mucosal inflammation [Recovering/Resolving]
  - Drug interaction [Recovering/Resolving]
  - Stomatitis [Recovering/Resolving]
  - Decreased appetite [Recovering/Resolving]

NARRATIVE: CASE EVENT DATE: 20180627
